FAERS Safety Report 11899312 (Version 1)
Quarter: 2016Q1

REPORT INFORMATION
  Report Type: Spontaneous
  Country: US (occurrence: US)
  Receive Date: 20160108
  Receipt Date: 20160108
  Transmission Date: 20160526
  Serious: Yes (Hospitalization)
  Sender: FDA-Public Use
  Company Number: US-SA-2015SA164438

PATIENT

DRUGS (1)
  1. AFREZZA [Suspect]
     Active Substance: INSULIN HUMAN
     Indication: DIABETES MELLITUS
     Dosage: STRENGTH: 6,7 MG + 3,3 MG?FORM: POWDER
     Route: 065

REACTIONS (1)
  - Diabetic ketoacidosis [Unknown]
